FAERS Safety Report 4734972-2 (Version None)
Quarter: 2005Q3

REPORT INFORMATION
  Report Type: 
  Country: None (occurrence: None)
  Receive Date: 20050721
  Receipt Date: 20050428
  Transmission Date: 20060218
  Serious: No
  Sender: FDA-Public Use
  Company Number: 2005SP000421

PATIENT
  Age: 44 Year
  Sex: Male
  Weight: 97.5234 kg

DRUGS (4)
  1. LUNESTA [Suspect]
     Dosage: 3 MG;HS;ORAL; 3 MG;X1;ORAL;6 MG;ORAL
     Route: 048
     Dates: start: 20050409
  2. LUNESTA [Suspect]
     Dosage: 3 MG;HS;ORAL; 3 MG;X1;ORAL;6 MG;ORAL
     Route: 048
     Dates: start: 20050411
  3. LUNESTA [Suspect]
     Dosage: 3 MG;HS;ORAL; 3 MG;X1;ORAL;6 MG;ORAL
     Route: 048
     Dates: start: 20050501
  4. DESYREL [Concomitant]

REACTIONS (2)
  - DRUG INEFFECTIVE [None]
  - MIDDLE INSOMNIA [None]
